FAERS Safety Report 21392128 (Version 3)
Quarter: 2024Q4

REPORT INFORMATION
  Report Type: Report from Study
  Country: US (occurrence: US)
  Receive Date: 20220929
  Receipt Date: 20241227
  Transmission Date: 20250115
  Serious: Yes (Hospitalization, Disabling, Other)
  Sender: NOVARTIS
  Company Number: US-NOVARTISPH-NVSC2022US219473

PATIENT
  Age: 20 Year
  Sex: Female
  Weight: 49 kg

DRUGS (3)
  1. KYMRIAH [Suspect]
     Active Substance: TISAGENLECLEUCEL
     Indication: Lymphocyte adoptive therapy
     Dosage: 1 DOSAGE FORM, ONCE/SINGLE (MORE THAN 50KG: 0.1-2.5X10E8 CAR+ VIABLE T-CELLS/KG)
     Route: 042
     Dates: start: 20220912, end: 20220912
  2. KYMRIAH [Suspect]
     Active Substance: TISAGENLECLEUCEL
     Indication: B-cell type acute leukaemia
  3. TOCILIZUMAB [Concomitant]
     Active Substance: TOCILIZUMAB
     Indication: Product used for unknown indication
     Dosage: 1 DOSAGE FORM
     Route: 065
     Dates: start: 20220919

REACTIONS (10)
  - Retinal detachment [Recovering/Resolving]
  - Vitreous haemorrhage [Unknown]
  - Immune effector cell-associated neurotoxicity syndrome [Unknown]
  - Blindness [Unknown]
  - Cytokine release syndrome [Unknown]
  - Ocular hyperaemia [Unknown]
  - Headache [Unknown]
  - Pyrexia [Unknown]
  - Irritability [Unknown]
  - Grief reaction [Unknown]

NARRATIVE: CASE EVENT DATE: 20220917
